FAERS Safety Report 7378338-8 (Version None)
Quarter: 2011Q1

REPORT INFORMATION
  Report Type: 
  Country: None (occurrence: None)
  Receive Date: 20110328
  Receipt Date: 20110317
  Transmission Date: 20110831
  Serious: Yes (Other)
  Sender: FDA-Public Use
  Company Number: US-ELI_LILLY_AND_COMPANY-US201103006494

PATIENT
  Age: 73 Year
  Sex: Female

DRUGS (5)
  1. ALENDRONATE SODIUM [Concomitant]
     Indication: CALCIUM DEFICIENCY
  2. CYMBALTA [Suspect]
     Indication: DEPRESSION
     Dosage: 60 MG, QD
     Dates: end: 20110316
  3. PRAVASTATIN [Concomitant]
     Dosage: 40 MG, UNK
  4. ABILIFY [Concomitant]
     Dosage: 5 MG, QD
     Dates: end: 20110119
  5. ALEVE [Concomitant]
     Dosage: UNK, BID

REACTIONS (11)
  - CHILLS [None]
  - BLOOD SODIUM INCREASED [None]
  - ARTHRALGIA [None]
  - RETINAL DETACHMENT [None]
  - DRUG INEFFECTIVE [None]
  - BLOOD CALCIUM DECREASED [None]
  - BLOOD CHOLESTEROL INCREASED [None]
  - HYPERHIDROSIS [None]
  - MACULOPATHY [None]
  - DRY MOUTH [None]
  - DRY EYE [None]
